FAERS Safety Report 9543426 (Version 2)
Quarter: 2013Q3

REPORT INFORMATION
  Report Type: Spontaneous
  Country: JP (occurrence: JP)
  Receive Date: 20130923
  Receipt Date: 20130923
  Transmission Date: 20140515
  Serious: Yes (Hospitalization)
  Sender: FDA-Public Use
  Company Number: JP-MERCK-1202USA01769

PATIENT
  Age: 103 Year
  Sex: Female

DRUGS (1)
  1. TIENAM [Suspect]
     Dosage: DAILY DOSAGE UNKNOWN
     Route: 030

REACTIONS (1)
  - Anaphylactic shock [Recovering/Resolving]
